FAERS Safety Report 8521873-7 (Version None)
Quarter: 2012Q3

REPORT INFORMATION
  Report Type: 
  Country: None (occurrence: None)
  Receive Date: 20120719
  Receipt Date: 20120516
  Transmission Date: 20120928
  Serious: No
  Sender: FDA-Public Use
  Company Number: US-BRISTOL-MYERS SQUIBB COMPANY-16600512

PATIENT
  Age: 70 Year
  Sex: Male
  Weight: 76 kg

DRUGS (7)
  1. PRILOSEC [Concomitant]
  2. ATENOLOL [Concomitant]
  3. VICODIN [Concomitant]
  4. SIMVASTATIN [Concomitant]
  5. YERVOY [Suspect]
     Indication: TONGUE NEOPLASM MALIGNANT STAGE UNSPECIFIED
     Dosage: 2ND INF: 10MAY12
     Dates: start: 20120503
  6. PROVIGIL [Concomitant]
  7. ASPIRIN [Concomitant]

REACTIONS (2)
  - RASH ERYTHEMATOUS [None]
  - ACNE [None]
